FAERS Safety Report 14871262 (Version 1)
Quarter: 2018Q2

REPORT INFORMATION
  Report Type: Other
  Country: US (occurrence: US)
  Receive Date: 20180509
  Receipt Date: 20180509
  Transmission Date: 20180711
  Serious: No
  Sender: FDA-Public Use
  Company Number: US-ALKERMES INC.-ALK-2017-002412

PATIENT
  Sex: Female
  Weight: 58.96 kg

DRUGS (2)
  1. VIVITROL [Suspect]
     Active Substance: NALTREXONE
     Indication: GAIT DISTURBANCE
  2. VIVITROL [Suspect]
     Active Substance: NALTREXONE
     Indication: PRODUCT USED FOR UNKNOWN INDICATION
     Dosage: 380 MG, QMO
     Route: 065
     Dates: start: 20151022

REACTIONS (6)
  - Condition aggravated [Unknown]
  - Injection site swelling [Unknown]
  - Injection site mass [Unknown]
  - Drug ineffective [Unknown]
  - Injection site reaction [Unknown]
  - Multiple sclerosis [Unknown]
